FAERS Safety Report 18837477 (Version 1)
Quarter: 2021Q1

REPORT INFORMATION
  Report Type: Report from Study
  Country: US (occurrence: US)
  Receive Date: 20210203
  Receipt Date: 20210203
  Transmission Date: 20210419
  Serious: Yes (Other)
  Sender: FDA-Public Use
  Company Number: NVSC2019US095303

PATIENT

DRUGS (1)
  1. ENTRESTO [Suspect]
     Active Substance: SACUBITRIL\VALSARTAN
     Indication: PRODUCT USED FOR UNKNOWN INDICATION
     Dosage: UNK
     Route: 065

REACTIONS (11)
  - Hypernatraemia [Unknown]
  - Thirst [Unknown]
  - Insomnia [Unknown]
  - Cough [Unknown]
  - Heart rate irregular [Unknown]
  - Fatigue [Unknown]
  - Blood sodium increased [Unknown]
  - Weight increased [Unknown]
  - Arrhythmia [Unknown]
  - Swelling [Unknown]
  - Dizziness [Unknown]
